FAERS Safety Report 22332819 (Version 1)
Quarter: 2023Q2

REPORT INFORMATION
  Report Type: Other
  Country: None (occurrence: US)
  Receive Date: 20230517
  Receipt Date: 20230517
  Transmission Date: 20230721
  Serious: Yes (Death)
  Sender: FDA-Public Use
  Company Number: US-B.Braun Medical Inc.-2141587

PATIENT
  Age: 75 Year
  Sex: Female

DRUGS (24)
  1. CEFTRIAXONE SODIUM [Suspect]
     Active Substance: CEFTRIAXONE SODIUM
     Indication: Soft tissue infection
  2. PREDNISONE [Concomitant]
     Active Substance: PREDNISONE
  3. LEFLUNOMIDE [Concomitant]
     Active Substance: LEFLUNOMIDE
  4. ACETAMINOPHEN [Concomitant]
     Active Substance: ACETAMINOPHEN
  5. AMLODIPINE [Concomitant]
     Active Substance: AMLODIPINE BESYLATE
  6. CALCITRIOL [Concomitant]
     Active Substance: CALCITRIOL
  7. CALCIUM CARBONATE [Concomitant]
     Active Substance: CALCIUM CARBONATE
  8. Diclofenac 1% topical gel [Concomitant]
  9. DULOXETINE [Concomitant]
     Active Substance: DULOXETINE
  10. FOLIC ACID [Concomitant]
     Active Substance: FOLIC ACID
  11. IRON [Concomitant]
     Active Substance: IRON
  12. LEFLUNOMIDE [Concomitant]
     Active Substance: LEFLUNOMIDE
  13. LEVOTHYROXINE [Concomitant]
     Active Substance: LEVOTHYROXINE
  14. LISINOPRIL [Concomitant]
     Active Substance: LISINOPRIL
  15. LOPERAMIDE [Concomitant]
     Active Substance: LOPERAMIDE
  16. Lubricating Plus 0.5% ophthalmic solution [Concomitant]
  17. OMEPRAZOLE [Concomitant]
     Active Substance: OMEPRAZOLE
  18. PREDNISONE [Concomitant]
     Active Substance: PREDNISONE
  19. PREGABALIN [Concomitant]
     Active Substance: PREGABALIN
  20. ROSUVASTATIN [Concomitant]
     Active Substance: ROSUVASTATIN
  21. ALBUTEROL [Concomitant]
     Active Substance: ALBUTEROL
  22. VANCOMYCIN [Suspect]
     Active Substance: VANCOMYCIN
  23. METRONIDAZOLE [Suspect]
     Active Substance: METRONIDAZOLE
  24. DOXYCYCLINE [Suspect]
     Active Substance: DOXYCYCLINE

REACTIONS (4)
  - Drug-induced liver injury [Fatal]
  - Abdominal wall haematoma [Fatal]
  - Acute kidney injury [Fatal]
  - Ileus [Fatal]
